FAERS Safety Report 23692400 (Version 1)
Quarter: 2024Q2

REPORT INFORMATION
  Report Type: Spontaneous
  Country: US (occurrence: US)
  Receive Date: 20240401
  Receipt Date: 20240401
  Transmission Date: 20240715
  Serious: Yes (Other)
  Sender: FDA-Public Use
  Company Number: US-FreseniusKabi-FK202405338

PATIENT
  Age: 43 Year
  Sex: Male

DRUGS (4)
  1. OCTREOTIDE [Suspect]
     Active Substance: OCTREOTIDE\OCTREOTIDE ACETATE
     Indication: Hypoglycaemia
     Route: 058
  2. ANHYDROUS DEXTROSE [Concomitant]
     Active Substance: ANHYDROUS DEXTROSE
     Indication: Hypoglycaemia
     Dosage: AFTER HYPOGLYCEMIA DID NOT RESOLVE WITH D5W. HE WAS TRANSFERRED TO ICU FOR D10 INFUSION AND STARTED
  3. GLIPIZIDE [Concomitant]
     Active Substance: GLIPIZIDE
     Indication: Diabetes mellitus
  4. DEXTROSE, UNSPECIFIED FORM [Concomitant]
     Active Substance: DEXTROSE, UNSPECIFIED FORM
     Indication: Hypoglycaemia

REACTIONS (1)
  - Hyperkalaemia [Recovering/Resolving]
